FAERS Safety Report 6550997-9 (Version None)
Quarter: 2010Q1

REPORT INFORMATION
  Report Type: 
  Country: None (occurrence: None)
  Receive Date: 20100122
  Receipt Date: 20100122
  Transmission Date: 20100710
  Serious: No
  Sender: FDA-Public Use
  Company Number: None

PATIENT
  Age: 40 Year
  Sex: Female
  Weight: 83.3 kg

DRUGS (1)
  1. PIROXICAM [Suspect]
     Indication: PAIN
     Dosage: 10 MG EVERY DAY PO
     Route: 048
     Dates: start: 20090330, end: 20090803

REACTIONS (3)
  - ABDOMINAL PAIN [None]
  - GASTRIC HAEMORRHAGE [None]
  - HAEMATEMESIS [None]
